FAERS Safety Report 13550081 (Version 2)
Quarter: 2017Q2

REPORT INFORMATION
  Report Type: Spontaneous
  Country: US (occurrence: US)
  Receive Date: 20170516
  Receipt Date: 20170606
  Transmission Date: 20170830
  Serious: No
  Sender: FDA-Public Use
  Company Number: US-GLAXOSMITHKLINE-US2017070313

PATIENT
  Age: 59 Year
  Sex: Female

DRUGS (1)
  1. ADVAIR DISKUS [Suspect]
     Active Substance: FLUTICASONE PROPIONATE\SALMETEROL XINAFOATE
     Indication: PRODUCT USED FOR UNKNOWN INDICATION
     Dosage: 1 PUFF(S), QD
     Route: 055
     Dates: start: 20170206

REACTIONS (9)
  - Nausea [Recovered/Resolved]
  - Wrong technique in product usage process [Unknown]
  - Underdose [Unknown]
  - Dizziness [Recovered/Resolved]
  - Intentional product misuse [Unknown]
  - Feeling jittery [Recovered/Resolved]
  - Medication residue present [Unknown]
  - Device use error [Unknown]
  - Expired product administered [Unknown]

NARRATIVE: CASE EVENT DATE: 20170506
